FAERS Safety Report 4911502-3 (Version None)
Quarter: 2006Q1

REPORT INFORMATION
  Report Type: 
  Country: None (occurrence: None)
  Receive Date: 20060113
  Receipt Date: 20051007
  Transmission Date: 20060701
  Serious: No
  Sender: FDA-Public Use
  Company Number: 2005SP003412

PATIENT
  Age: 55 Year
  Sex: Female
  Weight: 72.5755 kg

DRUGS (7)
  1. LUNESTA [Suspect]
     Indication: INSOMNIA
     Dosage: 2 MG; 3 MG : ORAL
     Route: 048
     Dates: start: 20050801, end: 20051001
  2. LUNESTA [Suspect]
     Indication: INSOMNIA
     Dosage: 2 MG; 3 MG : ORAL
     Route: 048
     Dates: start: 20051001
  3. INSULIN [Concomitant]
  4. DIOVANE [Concomitant]
  5. NEXIUM [Concomitant]
  6. CALCIUM GLUCONATE [Concomitant]
  7. VITAMIN D [Concomitant]

REACTIONS (2)
  - DRUG INEFFECTIVE [None]
  - MIDDLE INSOMNIA [None]
